FAERS Safety Report 4359525-X (Version None)
Quarter: 2004Q2

REPORT INFORMATION
  Report Type: 
  Country: None (occurrence: None)
  Receive Date: 20040514
  Receipt Date: 20040514
  Transmission Date: 20050107
  Serious: Yes (Hospitalization)
  Sender: FDA-Public Use
  Company Number: None

PATIENT
  Age: 88 Year
  Sex: Male

DRUGS (7)
  1. ATENOLOL [Suspect]
     Indication: HYPERTENSION
     Dosage: 50 MG QD
     Dates: start: 20030501
  2. ALLOPURINOL TAB [Concomitant]
  3. COLCHICINE [Concomitant]
  4. SALSALATE [Concomitant]
  5. FINASTERIDE [Concomitant]
  6. LISINOPRIL [Concomitant]
  7. TAMSULOSIN [Concomitant]

REACTIONS (1)
  - BRADYCARDIA [None]
